FAERS Safety Report 9179537 (Version 1)
Quarter: 2013Q1

REPORT INFORMATION
  Report Type: Spontaneous
  Country: US (occurrence: US)
  Receive Date: 20130321
  Receipt Date: 20130321
  Transmission Date: 20140127
  Serious: No
  Sender: FDA-Public Use
  Company Number: US-ASTRAZENECA-2013SE15203

PATIENT
  Sex: Female

DRUGS (2)
  1. ZOMIG [Suspect]
     Dosage: PATIENT IS CUTTING HER TABLETS IN HALF AND TAKING HALF TABLET USUALLY FOUR TIMES DAILY.
     Route: 048
  2. ZOMIG [Suspect]
     Route: 048

REACTIONS (3)
  - Migraine [Unknown]
  - Drug ineffective [Unknown]
  - Intentional drug misuse [Unknown]
